FAERS Safety Report 8085987-0 (Version None)
Quarter: 2012Q1

REPORT INFORMATION
  Report Type: 
  Country: None (occurrence: None)
  Receive Date: 20120128
  Receipt Date: 20110414
  Transmission Date: 20120608
  Serious: No
  Sender: FDA-Public Use
  Company Number: US-ABBOTT-11P-163-0718885-00

PATIENT
  Age: 54 Year
  Sex: Female

DRUGS (3)
  1. HUMIRA [Suspect]
     Indication: PSORIASIS
  2. ALBUTEROL [Concomitant]
     Indication: ASTHMA
     Dosage: 2 SHOTS AS NEEDED
     Dates: start: 20060101
  3. KAPIDEX [Concomitant]
     Indication: GASTROOESOPHAGEAL REFLUX DISEASE
     Dates: start: 20070101

REACTIONS (3)
  - CONTUSION [None]
  - NODULE [None]
  - INJECTION SITE PAIN [None]
